FAERS Safety Report 7475526-7 (Version None)
Quarter: 2011Q2

REPORT INFORMATION
  Report Type: 
  Country: None (occurrence: None)
  Receive Date: 20110512
  Receipt Date: 20110510
  Transmission Date: 20111010
  Serious: Yes (Death, Life-Threatening, Hospitalization, Other)
  Sender: FDA-Public Use
  Company Number: PHHY2011FR33668

PATIENT
  Age: 76 Year
  Sex: Female

DRUGS (4)
  1. ASPIRIN [Concomitant]
  2. CITRAFLEET [Interacting]
  3. LORAZEPAM [Concomitant]
  4. RASILEZ HCT [Suspect]
     Indication: HYPERTENSION
     Dosage: 1 DF, QD,300/25 MG
     Route: 048

REACTIONS (7)
  - LUNG DISORDER [None]
  - DRUG INTERACTION [None]
  - HYPONATRAEMIA [None]
  - VOMITING [None]
  - HYPOKALAEMIA [None]
  - RESPIRATORY DISTRESS [None]
  - LOSS OF CONSCIOUSNESS [None]
